FAERS Safety Report 9778066 (Version 2)
Quarter: 2014Q1

REPORT INFORMATION
  Report Type: Spontaneous
  Country: FR (occurrence: FR)
  Receive Date: 20131223
  Receipt Date: 20140123
  Transmission Date: 20141002
  Serious: No
  Sender: FDA-Public Use
  Company Number: FR-JNJFOC-20131206561

PATIENT
  Age: 52 Year
  Sex: Male

DRUGS (3)
  1. DUROGESIC [Suspect]
     Indication: SURGERY
     Route: 062
     Dates: start: 20131108
  2. DUROGESIC [Suspect]
     Indication: SURGERY
     Route: 062
     Dates: start: 20131015
  3. DUROGESIC [Suspect]
     Indication: SURGERY
     Route: 062
     Dates: start: 2013

REACTIONS (4)
  - Product quality issue [Unknown]
  - Wrong technique in drug usage process [Unknown]
  - Off label use [Unknown]
  - Incorrect dose administered [Unknown]
